FAERS Safety Report 8517473-5 (Version None)
Quarter: 2012Q3

REPORT INFORMATION
  Report Type: 
  Country: None (occurrence: None)
  Receive Date: 20120718
  Receipt Date: 20120709
  Transmission Date: 20120928
  Serious: Yes (Other)
  Sender: FDA-Public Use
  Company Number: GB-ROCHE-1085649

PATIENT
  Age: 52 Year
  Sex: Female
  Weight: 55.9 kg

DRUGS (6)
  1. IBROFEN [Concomitant]
  2. METHOTREXATE [Concomitant]
  3. METHYLPREDNISOLONE [Concomitant]
     Route: 042
  4. FOLIC ACID [Concomitant]
  5. MABTHERA [Suspect]
     Indication: RHEUMATOID ARTHRITIS
     Dosage: 100 MG
     Route: 042
     Dates: start: 20120615, end: 20120615
  6. CHLORPHENIRAMINE TAB [Concomitant]
     Route: 048

REACTIONS (5)
  - RASH [None]
  - SWELLING [None]
  - LIVEDO RETICULARIS [None]
  - MUCOUS MEMBRANE DISORDER [None]
  - PRURITUS [None]
